FAERS Safety Report 5551133-8 (Version None)
Quarter: 2007Q4

REPORT INFORMATION
  Report Type: 
  Country: None (occurrence: None)
  Receive Date: 20071212
  Receipt Date: 20071210
  Transmission Date: 20080405
  Serious: Yes (Hospitalization)
  Sender: FDA-Public Use
  Company Number: B0498901A

PATIENT
  Age: 81 Year
  Sex: Female

DRUGS (3)
  1. VALTREX [Suspect]
     Indication: HERPES ZOSTER
     Dosage: 1000MG THREE TIMES PER DAY
     Route: 048
     Dates: start: 20071127, end: 20071202
  2. CONIEL [Concomitant]
     Dosage: 4MG TWICE PER DAY
     Route: 048
  3. ARASENA-A [Concomitant]
     Route: 061

REACTIONS (4)
  - ANOREXIA [None]
  - PYREXIA [None]
  - RENAL FAILURE ACUTE [None]
  - RENAL FUNCTION TEST ABNORMAL [None]
